FAERS Safety Report 24571819 (Version 1)
Quarter: 2024Q4

REPORT INFORMATION
  Report Type: Spontaneous
  Country: US (occurrence: None)
  Receive Date: 20241031
  Receipt Date: 20241031
  Transmission Date: 20250114
  Serious: Yes (Other)
  Sender: Public
  Company Number: None

PATIENT
  Age: 38 Year
  Sex: Female
  Weight: 63 kg

DRUGS (6)
  1. QELBREE [Suspect]
     Active Substance: VILOXAZINE HYDROCHLORIDE
     Indication: Attention deficit hyperactivity disorder
     Dates: start: 20240401
  2. Transdermal estradiol [Concomitant]
  3. TRINTELLIX [Concomitant]
     Active Substance: VORTIOXETINE HYDROBROMIDE
  4. VITAMINS [Concomitant]
     Active Substance: VITAMINS
  5. CALCIUM CITRATE [Concomitant]
     Active Substance: CALCIUM CITRATE
  6. VITAMIN D3 [Concomitant]
     Active Substance: CHOLECALCIFEROL

REACTIONS (14)
  - Menopausal symptoms [None]
  - Hot flush [None]
  - Night sweats [None]
  - Vulvovaginal dryness [None]
  - Dry skin [None]
  - Dry eye [None]
  - Dry mouth [None]
  - Arthralgia [None]
  - Gastrointestinal disorder [None]
  - Mood swings [None]
  - Drug ineffective [None]
  - Nausea [None]
  - Migraine [None]
  - Drug interaction [None]

NARRATIVE: CASE EVENT DATE: 20240401
